FAERS Safety Report 8095859-3 (Version None)
Quarter: 2012Q1

REPORT INFORMATION
  Report Type: 
  Country: None (occurrence: None)
  Receive Date: 20120129
  Receipt Date: 20111221
  Transmission Date: 20120608
  Serious: No
  Sender: FDA-Public Use
  Company Number: US-ABBOTT-11P-163-0886571-00

PATIENT
  Age: 55 Year
  Sex: Male
  Weight: 99.88 kg

DRUGS (5)
  1. CRESTOR [Concomitant]
     Indication: HYPERLIPIDAEMIA
  2. HUMIRA [Suspect]
     Indication: PSORIASIS
     Dates: start: 20111108
  3. METOPROLOL TARTRATE [Concomitant]
     Indication: SUPRAVENTRICULAR TACHYCARDIA
  4. ASPIRIN [Concomitant]
     Indication: PROPHYLAXIS
  5. LISINOPRIL [Concomitant]
     Indication: HYPERTENSION

REACTIONS (2)
  - WEIGHT FLUCTUATION [None]
  - DIZZINESS [None]
